FAERS Safety Report 5903356-3 (Version None)
Quarter: 2008Q3

REPORT INFORMATION
  Report Type: 
  Country: None (occurrence: None)
  Receive Date: 20080930
  Receipt Date: 20080923
  Transmission Date: 20090109
  Serious: Yes (Hospitalization)
  Sender: FDA-Public Use
  Company Number: US-KINGPHARMUSA00001-K200801112

PATIENT

DRUGS (3)
  1. ALTACE [Suspect]
     Indication: HYPERTENSION
  2. LEVOTHYROXINE SODIUM [Concomitant]
  3. HORMONES AND RELATED AGENTS [Concomitant]

REACTIONS (1)
  - ANAPHYLACTIC SHOCK [None]
